FAERS Safety Report 18629154 (Version 2)
Quarter: 2021Q1

REPORT INFORMATION
  Report Type: Spontaneous
  Country: AT (occurrence: AT)
  Receive Date: 20201217
  Receipt Date: 20210105
  Transmission Date: 20210419
  Serious: Yes (Other)
  Sender: FDA-Public Use
  Company Number: NVSC2020AT331137

PATIENT
  Age: 64 Year
  Sex: Male

DRUGS (18)
  1. RITUXIMAB. [Suspect]
     Active Substance: RITUXIMAB
     Indication: DIFFUSE LARGE B-CELL LYMPHOMA
     Dosage: 3X R?ICE
     Route: 058
     Dates: start: 20100701
  2. CYCLOPHOSPHAMIDE. [Suspect]
     Active Substance: CYCLOPHOSPHAMIDE
     Indication: DIFFUSE LARGE B-CELL LYMPHOMA
     Dosage: 8XR?CHOP14 TO 04/07
     Route: 065
     Dates: start: 200704
  3. ETOPOSIDE. [Suspect]
     Active Substance: ETOPOSIDE
     Indication: DIFFUSE LARGE B-CELL LYMPHOMA
     Dosage: 3X R?ICE
     Route: 065
     Dates: start: 201007, end: 201009
  4. CYTARABINE. [Suspect]
     Active Substance: CYTARABINE
     Indication: DIFFUSE LARGE B-CELL LYMPHOMA
     Dosage: R?DHAP
     Route: 065
     Dates: start: 201209, end: 201211
  5. MELPHALAN. [Suspect]
     Active Substance: MELPHALAN
     Indication: DIFFUSE LARGE B-CELL LYMPHOMA
     Dosage: UNK
     Route: 065
     Dates: start: 20201018
  6. VINCRISTINE [Suspect]
     Active Substance: VINCRISTINE
     Indication: DIFFUSE LARGE B-CELL LYMPHOMA
     Dosage: 8XR?CHOP14 TO 04/07
     Route: 065
     Dates: start: 200704
  7. DOXORUBICIN HYDROCHLORIDE. [Suspect]
     Active Substance: DOXORUBICIN HYDROCHLORIDE
     Indication: DIFFUSE LARGE B-CELL LYMPHOMA
     Dosage: 8XR?CHOP14 TO 04/07
     Route: 065
     Dates: start: 200704
  8. RITUXIMAB. [Suspect]
     Active Substance: RITUXIMAB
     Dosage: R?BENDAMUSTINE
     Route: 058
     Dates: start: 20140501
  9. RITUXIMAB. [Suspect]
     Active Substance: RITUXIMAB
     Dosage: R?DHAP
     Route: 058
     Dates: start: 20120901
  10. PREDNISONE. [Suspect]
     Active Substance: PREDNISONE
     Indication: DIFFUSE LARGE B-CELL LYMPHOMA
     Dosage: 8XR?CHOP14 TO 04/07
     Route: 065
     Dates: start: 200704
  11. IFOSFAMIDE. [Suspect]
     Active Substance: IFOSFAMIDE
     Indication: DIFFUSE LARGE B-CELL LYMPHOMA
     Dosage: 3X R?ICE
     Route: 065
     Dates: start: 201007, end: 201009
  12. DEXAMETHASONE. [Suspect]
     Active Substance: DEXAMETHASONE
     Indication: DIFFUSE LARGE B-CELL LYMPHOMA
     Dosage: R?DHAP
     Route: 065
     Dates: start: 201209, end: 201211
  13. ETOPOSIDE. [Suspect]
     Active Substance: ETOPOSIDE
     Dosage: UNK
     Route: 065
     Dates: start: 20201018
  14. BENDAMUSTINE [Suspect]
     Active Substance: BENDAMUSTINE
     Indication: PRODUCT USED FOR UNKNOWN INDICATION
     Dosage: R?BENDAMUSTINE
     Route: 065
     Dates: start: 201405
  15. CISPLATIN. [Suspect]
     Active Substance: CISPLATIN
     Indication: DIFFUSE LARGE B-CELL LYMPHOMA
     Dosage: R?DHAP
     Route: 065
     Dates: start: 201209, end: 201211
  16. CARBOPLATIN. [Suspect]
     Active Substance: CARBOPLATIN
     Indication: DIFFUSE LARGE B-CELL LYMPHOMA
     Dosage: 3X R?ICE
     Route: 065
     Dates: start: 201007, end: 201009
  17. CYTARABINE. [Suspect]
     Active Substance: CYTARABINE
     Dosage: UNK
     Route: 065
     Dates: start: 20201018
  18. CARMUSTINE. [Suspect]
     Active Substance: CARMUSTINE
     Indication: DIFFUSE LARGE B-CELL LYMPHOMA
     Dosage: UNK
     Route: 065
     Dates: start: 20201018

REACTIONS (2)
  - B-cell lymphoma recurrent [Unknown]
  - Pancytopenia [Unknown]

NARRATIVE: CASE EVENT DATE: 201209
